FAERS Safety Report 9128720 (Version 1)
Quarter: 2013Q1

REPORT INFORMATION
  Report Type: Spontaneous
  Country: US (occurrence: US)
  Receive Date: 20130228
  Receipt Date: 20130228
  Transmission Date: 20140127
  Serious: No
  Sender: FDA-Public Use
  Company Number: US-B.I. PHARMACEUTICALS,INC./RIDGEFIELD-2013-BI-04837BP

PATIENT
  Sex: Male

DRUGS (6)
  1. SPIRIVA [Suspect]
     Indication: CHRONIC OBSTRUCTIVE PULMONARY DISEASE
     Dosage: 18 MCG
     Route: 055
     Dates: start: 201212
  2. COZAAR [Concomitant]
     Dosage: 100 MG
     Route: 048
  3. PRAVASTATIN [Concomitant]
     Route: 048
  4. ANTIHYPERTENSIVE [Concomitant]
     Indication: HYPERTENSION
  5. LEVOXYL [Concomitant]
     Dosage: 150 MCG
     Route: 048
  6. PREVACID [Concomitant]
     Route: 048

REACTIONS (3)
  - Oxygen saturation decreased [Recovered/Resolved]
  - Cough [Recovered/Resolved]
  - Pruritus [Not Recovered/Not Resolved]
